FAERS Safety Report 5218823-8 (Version None)
Quarter: 2007Q1

REPORT INFORMATION
  Report Type: 
  Country: None (occurrence: None)
  Receive Date: 20070122
  Receipt Date: 20070122
  Transmission Date: 20070707
  Serious: Yes (Hospitalization)
  Sender: FDA-Public Use
  Company Number: None

PATIENT
  Age: 60 Year
  Sex: Male
  Weight: 63.9 kg

DRUGS (1)
  1. IBUPROFEN [Suspect]
     Dosage: 2800MG DAILY

REACTIONS (5)
  - ABDOMINAL PAIN [None]
  - DIARRHOEA [None]
  - MELAENA [None]
  - NAUSEA [None]
  - VOMITING [None]
